FAERS Safety Report 5292262-6 (Version None)
Quarter: 2007Q2

REPORT INFORMATION
  Report Type: 
  Country: None (occurrence: None)
  Receive Date: 20070403
  Receipt Date: 20070323
  Transmission Date: 20071010
  Serious: No
  Sender: FDA-Public Use
  Company Number: 2007-152680-NL

PATIENT
  Age: 33 Year
  Sex: Female

DRUGS (1)
  1. CHORIONIC GONADOTROPIN [Suspect]
     Dosage: 5000 IU ONCE SUBCUTANEOUS
     Route: 058
     Dates: start: 20061108, end: 20061108

REACTIONS (2)
  - HYPERSENSITIVITY [None]
  - INFLUENZA LIKE ILLNESS [None]
